FAERS Safety Report 6548101-6 (Version None)
Quarter: 2010Q1

REPORT INFORMATION
  Report Type: 
  Country: None (occurrence: None)
  Receive Date: 20100124
  Receipt Date: 20100112
  Transmission Date: 20100710
  Serious: Yes (Death, Hospitalization, Other)
  Sender: FDA-Public Use
  Company Number: US-ALEXION-A200900968

PATIENT
  Sex: Male

DRUGS (26)
  1. SOLIRIS [Suspect]
     Indication: PAROXYSMAL NOCTURNAL HAEMOGLOBINURIA
     Dosage: 600 MG, QW X4
     Route: 042
  2. SOLIRIS [Suspect]
     Dosage: 900 MG, Q2W
     Route: 042
     Dates: end: 20091028
  3. ACYCLOVIR [Concomitant]
     Dosage: 400 MG, BID
     Route: 048
  4. ALLOPURINOL [Concomitant]
     Dosage: 300 MG, QD
     Route: 048
  5. CYTARABINE [Concomitant]
     Dosage: 4000 MG, QD
     Route: 042
  6. DEXAMETHASONE [Concomitant]
     Dosage: 10 MG, BID
     Route: 048
  7. FAMOTIDINE [Concomitant]
     Dosage: 20 MG, QD
     Route: 048
  8. FILGRASTIM [Concomitant]
     Dosage: 480 UG, QD
     Route: 058
  9. FOLIC ACID [Concomitant]
     Dosage: 1 MG, QD
     Route: 048
  10. NPH INSULIN [Concomitant]
     Dosage: 6 IU, QD HS
     Route: 058
  11. NPH INSULIN [Concomitant]
     Dosage: 14 IU, AC
     Route: 058
  12. METFORMIN [Concomitant]
     Dosage: 500 MG, BID
     Route: 048
  13. ONDANSETRON [Concomitant]
     Dosage: 24 MG, QD
     Route: 048
  14. POSACONAZOLE [Concomitant]
     Dosage: 200 MG, TID WITH MEAL
     Route: 048
  15. PREDNISOLONE ACETATE [Concomitant]
     Dosage: 1 GTT, OU, Q6H X10D
     Route: 047
  16. PROCHLORPERAZINE [Concomitant]
     Dosage: 10 MG, QD
     Route: 048
  17. ACETAMINOPHEN [Concomitant]
     Indication: BODY TEMPERATURE INCREASED
     Dosage: 1300 MG, Q4H PRN
  18. PERCOCET [Concomitant]
     Indication: PAIN
     Dosage: 5/325 MG Q6H PRN
     Route: 048
  19. MAALOX                             /00082501/ [Concomitant]
     Indication: DYSPEPSIA
     Dosage: 30 ML, PRN
     Route: 048
  20. BENADRYL [Concomitant]
     Indication: PRURITUS
     Dosage: 25 MG, PRN Q6H
     Route: 042
  21. REGULAR INSULIN [Concomitant]
     Dosage: SLIDING SCALE AC AND HS PRN
     Route: 058
  22. LORAZEPAM [Concomitant]
     Indication: NAUSEA
     Dosage: 1 MG, PRN Q8H
     Route: 042
  23. PROCHLORPERAZINE [Concomitant]
     Indication: NAUSEA
     Dosage: 10 MG, PRN Q6H
     Route: 048
  24. PHENERGAN HCL [Concomitant]
     Indication: NAUSEA
     Dosage: 12.5 MG, PRN Q4H
     Route: 042
  25. NORMAL SALINE [Concomitant]
     Dosage: 125 ML, UNK
     Route: 042
  26. DAUNORUBICIN HCL [Concomitant]
     Dosage: 120 MG, QD
     Route: 042

REACTIONS (6)
  - ACUTE LEUKAEMIA [None]
  - DEATH [None]
  - FEBRILE NEUTROPENIA [None]
  - PNEUMONIA [None]
  - RESPIRATORY FAILURE [None]
  - STAPHYLOCOCCAL BACTERAEMIA [None]
